FAERS Safety Report 5317287-3 (Version None)
Quarter: 2007Q2

REPORT INFORMATION
  Report Type: 
  Country: None (occurrence: None)
  Receive Date: 20070504
  Receipt Date: 20070423
  Transmission Date: 20071010
  Serious: Yes (Other)
  Sender: FDA-Public Use
  Company Number: US-PFIZER INC-2007033349

PATIENT
  Sex: Female
  Weight: 64.4 kg

DRUGS (4)
  1. CHANTIX [Suspect]
     Indication: SMOKING CESSATION THERAPY
     Dates: start: 20060911, end: 20070401
  2. LASIX [Suspect]
     Indication: OEDEMA
  3. TYGACIL [Concomitant]
  4. ANTIBIOTICS [Concomitant]

REACTIONS (8)
  - BLOOD ELECTROLYTES ABNORMAL [None]
  - BLOOD PRESSURE INCREASED [None]
  - DYSPHAGIA [None]
  - DYSPNOEA [None]
  - FLUID RETENTION [None]
  - MUSCLE DISORDER [None]
  - OEDEMA [None]
  - WEIGHT INCREASED [None]
